FAERS Safety Report 18746851 (Version 4)
Quarter: 2021Q1

REPORT INFORMATION
  Report Type: Report from Study
  Country: GB (occurrence: GB)
  Receive Date: 20210115
  Receipt Date: 20210301
  Transmission Date: 20210419
  Serious: Yes (Hospitalization, Other)
  Sender: FDA-Public Use
  Company Number: GB-BRISTOL-MYERS SQUIBB COMPANY-BMS-2021-001320

PATIENT
  Age: 56 Year
  Sex: Male
  Weight: 75.5 kg

DRUGS (2)
  1. TEMOZOLOMIDE. [Suspect]
     Active Substance: TEMOZOLOMIDE
     Indication: GLIOBLASTOMA MULTIFORME
     Dosage: 300 MILLIGRAM (DAILY FOR 6 DAYS IN 6X 28 DAY CYCLE)
     Route: 048
     Dates: start: 20201223, end: 20201227
  2. IPILIMUMAB [Suspect]
     Active Substance: IPILIMUMAB
     Indication: GLIOBLASTOMA MULTIFORME
     Dosage: 228 MILLIGRAM (EVERY 3 WEEKS FOR 4 DOSES)
     Route: 042
     Dates: start: 20201203, end: 20201223

REACTIONS (2)
  - Colitis [Recovered/Resolved]
  - Diarrhoea haemorrhagic [Recovering/Resolving]

NARRATIVE: CASE EVENT DATE: 20210111
